FAERS Safety Report 16352278 (Version 1)
Quarter: 2019Q2

REPORT INFORMATION
  Report Type: Spontaneous
  Country: US (occurrence: US)
  Receive Date: 20190418
  Receipt Date: 20190418
  Transmission Date: 20190711
  Serious: Yes (Other)
  Sender: FDA-Public Use
  Company Number: None

PATIENT
  Age: 48 Year
  Sex: Female
  Weight: 71.1 kg

DRUGS (2)
  1. SUGAMMADEX 200MG [Suspect]
     Active Substance: SUGAMMADEX
     Indication: NEUROMUSCULAR BLOCKADE REVERSAL
     Route: 042
     Dates: start: 20190325
  2. BENAZEPRIL 10MG TAB AMN [Suspect]
     Active Substance: BENAZEPRIL HYDROCHLORIDE
     Indication: HYPERTENSION
     Route: 048
     Dates: start: 20190305, end: 20190325

REACTIONS (6)
  - Headache [None]
  - Stridor [None]
  - Angle closure glaucoma [None]
  - Gait disturbance [None]
  - Vertigo [None]
  - Vision blurred [None]

NARRATIVE: CASE EVENT DATE: 20190325
